FAERS Safety Report 16287035 (Version 1)
Quarter: 2019Q2

REPORT INFORMATION
  Report Type: Spontaneous
  Country: CA (occurrence: CA)
  Receive Date: 20190508
  Receipt Date: 20190508
  Transmission Date: 20190711
  Serious: Yes (Other)
  Sender: FDA-Public Use
  Company Number: CA-PFIZER INC-2019192183

PATIENT
  Age: 72 Year
  Sex: Male

DRUGS (6)
  1. LOPERAMIDE [Concomitant]
     Active Substance: LOPERAMIDE
     Dosage: 8 DF, DAILY AS NEEDED
  2. ACTONEL [Concomitant]
     Active Substance: RISEDRONATE SODIUM
     Dosage: UNK
  3. MESALAMINE. [Concomitant]
     Active Substance: MESALAMINE
     Dosage: 4 DF, DAILY
  4. CRESTOR [Concomitant]
     Active Substance: ROSUVASTATIN CALCIUM
     Dosage: 10 MG, DAILY; IS WEANING OFF
  5. PROPANOLOL HCL [Suspect]
     Active Substance: PROPRANOLOL HYDROCHLORIDE
     Dosage: 2 DF, 3X/DAY WEANING OFF OVER THE NEXT 3 WEEKS
  6. PREDNISONE. [Concomitant]
     Active Substance: PREDNISONE
     Dosage: 5 DF, DAILY DECREASING BY 1 TABLET EVERY WEEK UNTIL FINISHED

REACTIONS (9)
  - Decreased appetite [Unknown]
  - Colitis [Unknown]
  - Basal cell carcinoma [Unknown]
  - Condition aggravated [Unknown]
  - Haemoglobin decreased [Unknown]
  - Hernia [Not Recovered/Not Resolved]
  - Diarrhoea [Unknown]
  - Weight decreased [Unknown]
  - Blood albumin decreased [Unknown]
